FAERS Safety Report 7555621-4 (Version None)
Quarter: 2011Q2

REPORT INFORMATION
  Report Type: 
  Country: None (occurrence: None)
  Receive Date: 20110617
  Receipt Date: 20110610
  Transmission Date: 20111010
  Serious: Yes (Other)
  Sender: FDA-Public Use
  Company Number: SA-GENENTECH-320241

PATIENT
  Age: 40 Day
  Sex: Female
  Weight: 3 kg

DRUGS (2)
  1. ALTEPLASE [Suspect]
     Indication: INTRACARDIAC THROMBUS
     Dosage: 0.3 MG/KG, CONTINUOUS
  2. HEPARIN [Concomitant]
     Indication: PROPHYLAXIS

REACTIONS (1)
  - HAEMORRHAGE [None]
